FAERS Safety Report 6736253-4 (Version None)
Quarter: 2010Q2

REPORT INFORMATION
  Report Type: 
  Country: None (occurrence: None)
  Receive Date: 20100520
  Receipt Date: 20100520
  Transmission Date: 20101027
  Serious: Yes (Other)
  Sender: FDA-Public Use
  Company Number: None

PATIENT
  Sex: Male

DRUGS (1)
  1. AMPYRA [Suspect]
     Indication: MULTIPLE SCLEROSIS
     Dosage: 10MG EVERY 12HRS BY MOUTH
     Route: 048

REACTIONS (2)
  - DYSPEPSIA [None]
  - MIDDLE INSOMNIA [None]
